FAERS Safety Report 5285394-X (Version None)
Quarter: 2007Q2

REPORT INFORMATION
  Report Type: 
  Country: None (occurrence: None)
  Receive Date: 20070403
  Receipt Date: 20070327
  Transmission Date: 20071010
  Serious: Yes (Other)
  Sender: FDA-Public Use
  Company Number: JP-PFIZER INC-2007025472

PATIENT
  Age: 53 Year
  Sex: Female

DRUGS (3)
  1. PREDNISOLONE [Suspect]
  2. METHOTREXATE [Suspect]
  3. ALPHA GLUCOSIDASE INHIBITORS [Suspect]
     Route: 048

REACTIONS (1)
  - PNEUMATOSIS INTESTINALIS [None]
